FAERS Safety Report 23602969 (Version 1)
Quarter: 2024Q1

REPORT INFORMATION
  Report Type: Report from Study
  Country: US (occurrence: US)
  Receive Date: 20240306
  Receipt Date: 20240306
  Transmission Date: 20240409
  Serious: Yes (Other)
  Sender: FDA-Public Use
  Company Number: US-ABBVIE-5665746

PATIENT
  Age: 65 Year
  Sex: Female

DRUGS (1)
  1. RINVOQ [Suspect]
     Active Substance: UPADACITINIB
     Indication: Rheumatoid arthritis
     Route: 048
     Dates: start: 20221021

REACTIONS (5)
  - Knee arthroplasty [Unknown]
  - Rheumatoid arthritis [Not Recovered/Not Resolved]
  - Procedural pain [Not Recovered/Not Resolved]
  - Dyspnoea [Unknown]
  - Gait inability [Unknown]

NARRATIVE: CASE EVENT DATE: 20240216
